FAERS Safety Report 9238149 (Version 2)
Quarter: 2013Q2

REPORT INFORMATION
  Report Type: Spontaneous
  Country: US (occurrence: US)
  Receive Date: 20130418
  Receipt Date: 20130514
  Transmission Date: 20140414
  Serious: Yes (Life-Threatening, Hospitalization, Other)
  Sender: FDA-Public Use
  Company Number: PHEH2013US008144

PATIENT
  Age: 53 Year
  Sex: Male
  Weight: 82.54 kg

DRUGS (8)
  1. SANDOSTATIN LAR DEPOT [Suspect]
     Indication: ACROMEGALY
     Dosage: 20 MG, EVERY 28 DAYS
     Route: 030
     Dates: start: 199910, end: 201202
  2. SANDOSTATIN LAR DEPOT [Suspect]
     Dosage: 10 MG, EVERY 28 DAYS
     Route: 030
     Dates: start: 201202, end: 201303
  3. SANDOSTATIN [Suspect]
     Dosage: 3 TIMES A DAY
  4. SYNTHROID [Concomitant]
     Dosage: 50 UG, UNK
     Route: 048
  5. ATORVASTATIN [Concomitant]
     Dosage: 20 UG, UNK
     Route: 048
  6. ASA [Concomitant]
     Dosage: UNK UKN, UNK
     Route: 048
  7. PLAVIX [Concomitant]
     Dosage: UNK UKN, UNK
     Route: 048
  8. COUMARIN [Concomitant]
     Dosage: UNK UKN, UNK
     Route: 048

REACTIONS (6)
  - Cerebrovascular accident [Recovered/Resolved]
  - Transient ischaemic attack [Recovered/Resolved]
  - Heart rate irregular [Unknown]
  - Ventricular extrasystoles [Unknown]
  - Palpitations [Unknown]
  - Extrasystoles [Unknown]
